FAERS Safety Report 24731962 (Version 2)
Quarter: 2025Q1

REPORT INFORMATION
  Report Type: Spontaneous
  Country: US (occurrence: US)
  Receive Date: 20241213
  Receipt Date: 20250313
  Transmission Date: 20250409
  Serious: No
  Sender: BRISTOL-MYERS SQUIBB COMPANY
  Company Number: US-EXELIXIS-EXL-2024-000865

PATIENT
  Age: 37 Year
  Sex: Female

DRUGS (3)
  1. OPDIVO [Suspect]
     Active Substance: NIVOLUMAB
     Indication: Renal cancer
     Route: 042
  2. CABOMETYX [Suspect]
     Active Substance: CABOZANTINIB S-MALATE
     Indication: Renal cancer
     Dosage: 40 MG, QD
     Route: 048
  3. CABOMETYX [Suspect]
     Active Substance: CABOZANTINIB S-MALATE
     Dosage: 40 MG, QD
     Route: 048

REACTIONS (7)
  - Hyperkeratosis [Unknown]
  - Rash macular [Unknown]
  - Nausea [Recovered/Resolved]
  - Pain in extremity [Recovered/Resolved]
  - Faeces hard [Not Recovered/Not Resolved]
  - Oropharyngeal pain [Unknown]
  - Skin ulcer [Unknown]
